FAERS Safety Report 9517514 (Version 2)
Quarter: 2013Q3

REPORT INFORMATION
  Report Type: Report from Study
  Country: ES (occurrence: ES)
  Receive Date: 20130911
  Receipt Date: 20130911
  Transmission Date: 20140515
  Serious: Yes (Death, Other)
  Sender: FDA-Public Use
  Company Number: ES-ROCHE-578542

PATIENT
  Sex: 0

DRUGS (14)
  1. RITUXIMAB [Suspect]
     Indication: BURKITT^S LYMPHOMA
     Dosage: PROGRESSIVE INFUSION OVER 4HRS ON DAYS 7, 28, 49, 70, 91 AND 112.?ADDITIONAL DOSES DAY 133 AND 154.
     Route: 042
  2. CYCLOPHOSPHAMIDE [Suspect]
     Indication: BURKITT^S LYMPHOMA
     Dosage: PREPHASE: OVER 1HR ON DAYS 1 - 5 INCLUSIVE.?CYCLE B: OVER 1HR ON DAYS 29 - 33 AND 92 - 96 INCLUSIVE.
     Route: 042
  3. PREDNISONE [Suspect]
     Indication: BURKITT^S LYMPHOMA
     Dosage: PREPHASE: ON DAYS 1 - 5 INCLUSIVE.
     Route: 041
  4. METHOTREXATE [Suspect]
     Indication: BURKITT^S LYMPHOMA
     Dosage: GIVEN OVER 24 HOURS ON DAYS 8, 29, 50, 71, 92 AND 113.
     Route: 042
  5. VINCRISTINE [Suspect]
     Indication: BURKITT^S LYMPHOMA
     Dosage: GIVEN ON DAYS 8, 29, 71 AND 92.
     Route: 040
  6. DEXAMETHASONE [Suspect]
     Indication: BURKITT^S LYMPHOMA
     Dosage: GIVEN ON DAYS 8 - 12, 29 - 33, 50 - 54, 71 - 75, 92 - 96 AND 113 - 117 INCLUSIVE.
     Route: 040
  7. CYTARABINE [Suspect]
     Indication: BURKITT^S LYMPHOMA
     Dosage: GIVEN OVER 1HR EVERY 12 HOURS ON DAYS 11 - 12 AND 74 - 75.
     Route: 042
  8. CYTARABINE [Suspect]
     Dosage: GIVEN OVER 3HRS EVERY 12 HOURS ON DAYS 54 AND 117.
     Route: 042
  9. ETOPOSIDE [Suspect]
     Indication: BURKITT^S LYMPHOMA
     Dosage: GIVEN OVER 1HR ON DAYS 53, 54, 116 AND 117.
     Route: 042
  10. DOXORUBICIN [Suspect]
     Indication: BURKITT^S LYMPHOMA
     Dosage: GIVEN OVER 15 MINUTES ON DAYS 32, 33, 95 AND 96.
     Route: 042
  11. ISOPHOSPHAMIDE [Suspect]
     Indication: BURKITT^S LYMPHOMA
     Dosage: GIVEN OVER ONE HOUR ON DAYS 8 - 12 AND 71 - 75 INCLUSIVE.
     Route: 042
  12. TENIPOSIDE [Suspect]
     Indication: BURKITT^S LYMPHOMA
     Dosage: GIVEN OVER 1HR ON DAYS 11, 12, 74 AND 75.
     Route: 042
  13. VINDESINE [Suspect]
     Indication: BURKITT^S LYMPHOMA
     Dosage: MAX DOSE 5MG.?GIVEN ON DAYS 50 AND 113.
     Route: 042
  14. ALLOPURINOL [Concomitant]
     Indication: PROPHYLAXIS
     Dosage: GIVEN DURING PREPHASE AND FIRST TREATMENT COURSE.
     Route: 065

REACTIONS (19)
  - Fungal sepsis [Fatal]
  - Fungal sepsis [Fatal]
  - Pneumonia [Fatal]
  - Candida pneumonia [Fatal]
  - Toxicity to various agents [Fatal]
  - Pneumonia [Fatal]
  - Bronchopulmonary aspergillosis [Fatal]
  - Infection [Fatal]
  - Neutropenia [Unknown]
  - Mucosal inflammation [Unknown]
  - Nephropathy toxic [Unknown]
  - Neurotoxicity [Unknown]
  - Oral candidiasis [Unknown]
  - Pancytopenia [Unknown]
  - Toxicity to various agents [Unknown]
  - Thrombocytopenia [Unknown]
  - Hepatotoxicity [Unknown]
  - Gastrointestinal toxicity [Recovering/Resolving]
  - Tumour lysis syndrome [Recovering/Resolving]
